FAERS Safety Report 11703651 (Version 2)
Quarter: 2016Q1

REPORT INFORMATION
  Report Type: Spontaneous
  Country: AR (occurrence: AR)
  Receive Date: 20151106
  Receipt Date: 20160203
  Transmission Date: 20160525
  Serious: Yes (Other)
  Sender: FDA-Public Use
  Company Number: AR-AMGEN-ARGSP2015116174

PATIENT
  Age: 72 Year
  Sex: Female

DRUGS (5)
  1. GASTEC                             /00622101/ [Concomitant]
     Dosage: UNK
  2. ENBREL [Suspect]
     Active Substance: ETANERCEPT
     Indication: RHEUMATOID ARTHRITIS
     Dosage: 50 MG, WEEKLY
     Route: 065
     Dates: start: 20141020
  3. FILARTROS [Concomitant]
     Active Substance: LEFLUNOMIDE
     Dosage: UNK
     Dates: start: 2004
  4. DICLOFENAC [Concomitant]
     Active Substance: DICLOFENAC
     Dosage: UNK
     Dates: start: 2014
  5. DELTISONA [Concomitant]
     Dosage: UNK
     Dates: start: 2004

REACTIONS (2)
  - Bone erosion [Recovered/Resolved]
  - Bone erosion [Recovering/Resolving]

NARRATIVE: CASE EVENT DATE: 201412
